FAERS Safety Report 8362750-4 (Version None)
Quarter: 2012Q2

REPORT INFORMATION
  Report Type: 
  Country: None (occurrence: None)
  Receive Date: 20120516
  Receipt Date: 20120507
  Transmission Date: 20120825
  Serious: Yes (Hospitalization)
  Sender: FDA-Public Use
  Company Number: PHHY2012NL039502

PATIENT
  Sex: Male

DRUGS (3)
  1. ZOMETA [Suspect]
     Dosage: UNK
     Dates: start: 20120410
  2. ZOMETA [Suspect]
     Indication: PROSTATE CANCER METASTATIC
     Dates: start: 20111027
  3. ZOMETA [Suspect]
     Dosage: UNK
     Dates: start: 20120312

REACTIONS (1)
  - DEVICE RELATED INFECTION [None]
